FAERS Safety Report 8852808 (Version 1)
Quarter: 2012Q4

REPORT INFORMATION
  Report Type: Report from Study
  Country: ES (occurrence: ES)
  Receive Date: 20121022
  Receipt Date: 20121022
  Transmission Date: 20130627
  Serious: Yes (Hospitalization)
  Sender: FDA-Public Use
  Company Number: ES-BAXTER-2012BAX019809

PATIENT
  Age: 63 Year
  Sex: Female
  Weight: 72 kg

DRUGS (6)
  1. GENOXAL [Suspect]
     Indication: CHRONIC LYMPHOID LEUKAEMIA
     Dates: start: 20080417, end: 20080926
  2. GENOXAL [Suspect]
     Dates: start: 20080926
  3. RITUXIMAB [Suspect]
     Indication: CHRONIC LYMPHOID LEUKAEMIA
     Dates: start: 20081222, end: 20120111
  4. RITUXIMAB [Suspect]
     Dates: start: 20120111
  5. FLUDARABINE [Suspect]
     Indication: CHRONIC LYMPHOID LEUKAEMIA
     Dates: start: 20080417, end: 20080926
  6. FLUDARABINE [Suspect]
     Dates: start: 20080926

REACTIONS (1)
  - Cytomegalovirus infection [Recovered/Resolved]
